FAERS Safety Report 16829063 (Version 3)
Quarter: 2019Q4

REPORT INFORMATION
  Report Type: Report from Study
  Country: ID (occurrence: ID)
  Receive Date: 20190919
  Receipt Date: 20191007
  Transmission Date: 20200122
  Serious: Yes (Death, Hospitalization, Other)
  Sender: FDA-Public Use
  Company Number: ID-BAYER-2019-143684

PATIENT
  Age: 67 Year
  Sex: Female

DRUGS (1)
  1. NEXAVAR [Suspect]
     Active Substance: SORAFENIB
     Indication: HEPATOCELLULAR CARCINOMA
     Dosage: 200 MG, BID
     Route: 048
     Dates: start: 20190725, end: 20190818

REACTIONS (19)
  - Dyspnoea [Fatal]
  - Restlessness [Fatal]
  - Food refusal [Fatal]
  - Abdominal pain upper [Not Recovered/Not Resolved]
  - Rash [Recovered/Resolved]
  - Asthenia [Fatal]
  - Abdominal pain [Fatal]
  - Pneumonia [Not Recovered/Not Resolved]
  - Pyrexia [Recovered/Resolved]
  - Hypertension [Recovered/Resolved]
  - Blood bilirubin increased [Not Recovered/Not Resolved]
  - Erythema [Recovered/Resolved]
  - Pyrexia [Recovered/Resolved]
  - Acute on chronic liver failure [Fatal]
  - Aspartate aminotransferase increased [Not Recovered/Not Resolved]
  - Interstitial lung disease [None]
  - Dyspnoea [Not Recovered/Not Resolved]
  - Alanine aminotransferase increased [Not Recovered/Not Resolved]
  - Systolic hypertension [Recovered/Resolved]

NARRATIVE: CASE EVENT DATE: 201907
